FAERS Safety Report 22299787 (Version 1)
Quarter: 2023Q2

REPORT INFORMATION
  Report Type: Spontaneous
  Country: US (occurrence: US)
  Receive Date: 20230509
  Receipt Date: 20230509
  Transmission Date: 20230722
  Serious: Yes (Hospitalization, Other)
  Sender: FDA-Public Use
  Company Number: US-AMGEN-USASP2023077230

PATIENT
  Sex: Male

DRUGS (1)
  1. KYPROLIS [Suspect]
     Active Substance: CARFILZOMIB
     Indication: Plasma cell myeloma refractory
     Dosage: UNK
     Route: 065
     Dates: start: 202303

REACTIONS (3)
  - Hypophagia [Unknown]
  - Blood creatinine increased [Unknown]
  - Dehydration [Unknown]

NARRATIVE: CASE EVENT DATE: 20230101
